FAERS Safety Report 6629655-8 (Version None)
Quarter: 2010Q1

REPORT INFORMATION
  Report Type: 
  Country: None (occurrence: None)
  Receive Date: 20100311
  Receipt Date: 20100305
  Transmission Date: 20100710
  Serious: Yes (Other)
  Sender: FDA-Public Use
  Company Number: CN-ASTRAZENECA-2010SE01572

PATIENT
  Age: 74 Year
  Sex: Female

DRUGS (1)
  1. OMEPRAZOLE [Suspect]
     Indication: OESOPHAGITIS
     Route: 048

REACTIONS (3)
  - EOSINOPHILIA [None]
  - LEUKOCYTURIA [None]
  - RENAL FAILURE [None]
